FAERS Safety Report 14668373 (Version 1)
Quarter: 2018Q1

REPORT INFORMATION
  Report Type: Spontaneous
  Country: US (occurrence: US)
  Receive Date: 20180321
  Receipt Date: 20180321
  Transmission Date: 20180509
  Serious: No
  Sender: FDA-Public Use
  Company Number: None

PATIENT
  Sex: Female
  Weight: 161.55 kg

DRUGS (26)
  1. TRADJENTA [Concomitant]
     Active Substance: LINAGLIPTIN
  2. PROCHLORPERAZINE MALEATE. [Concomitant]
     Active Substance: PROCHLORPERAZINE MALEATE
  3. TORSEMIDE. [Concomitant]
     Active Substance: TORSEMIDE
  4. AZELASTINE HCL [Concomitant]
     Active Substance: AZELASTINE HYDROCHLORIDE
  5. ALBUTEROL SULFATE. [Concomitant]
     Active Substance: ALBUTEROL SULFATE
  6. PSYLLIUM HUSK. [Concomitant]
     Active Substance: PSYLLIUM HUSK
  7. TYLENOL PM EXTRA STRENGTH [Concomitant]
     Active Substance: ACETAMINOPHEN\DIPHENHYDRAMINE HYDROCHLORIDE
  8. GLIMEPIRIDE. [Concomitant]
     Active Substance: GLIMEPIRIDE
  9. LEVOTHYROXINE SODIUM. [Concomitant]
     Active Substance: LEVOTHYROXINE SODIUM
  10. CLOTRIMAZOLE AF [Concomitant]
  11. LOMOTIL [Concomitant]
     Active Substance: ATROPINE SULFATE\DIPHENOXYLATE HYDROCHLORIDE
  12. ASACOL HD [Concomitant]
     Active Substance: MESALAMINE
  13. HYDROCORTISONE. [Concomitant]
     Active Substance: HYDROCORTISONE
  14. NINLARO [Suspect]
     Active Substance: IXAZOMIB CITRATE
     Indication: PLASMA CELL MYELOMA
     Dosage: ?          OTHER FREQUENCY:QD DAY 1,8,15 /28D;?
     Route: 048
     Dates: start: 20171206
  15. WELCHOL [Concomitant]
     Active Substance: COLESEVELAM HYDROCHLORIDE
  16. ACYCLOVIR. [Concomitant]
     Active Substance: ACYCLOVIR
  17. NINLARO [Concomitant]
     Active Substance: IXAZOMIB CITRATE
  18. NYSTATIN. [Concomitant]
     Active Substance: NYSTATIN
  19. DEXAMETHASONE. [Concomitant]
     Active Substance: DEXAMETHASONE
  20. MAGNESIUM [Concomitant]
     Active Substance: MAGNESIUM
  21. MINOXIDIL. [Concomitant]
     Active Substance: MINOXIDIL
  22. CINNAMON. [Concomitant]
     Active Substance: CINNAMON
  23. OMEPRAZOLE. [Concomitant]
     Active Substance: OMEPRAZOLE
  24. REVLIMID [Concomitant]
     Active Substance: LENALIDOMIDE
  25. BIOTIN 5000 [Concomitant]
  26. GRANISETRON HCL [Concomitant]

REACTIONS (2)
  - Paraesthesia [None]
  - Hypoaesthesia [None]
